FAERS Safety Report 20083357 (Version 1)
Quarter: 2021Q4

REPORT INFORMATION
  Report Type: Report from Study
  Country: KR (occurrence: KR)
  Receive Date: 20211117
  Receipt Date: 20211117
  Transmission Date: 20220303
  Serious: Yes (Hospitalization)
  Sender: FDA-Public Use
  Company Number: KR-CELLTRION INC.-2021KR015484

PATIENT

DRUGS (18)
  1. HERZUMA [Suspect]
     Active Substance: TRASTUZUMAB-PKRB
     Indication: Breast cancer
     Dosage: UNK
     Route: 042
     Dates: start: 20201203, end: 20210921
  2. ABEMACICLIB [Suspect]
     Active Substance: ABEMACICLIB
     Indication: Breast cancer
     Dosage: UNK
     Route: 048
     Dates: start: 20201203, end: 20210317
  3. ABEMACICLIB [Suspect]
     Active Substance: ABEMACICLIB
     Dosage: CYCLE 9
     Dates: start: 20210518
  4. ABEMACICLIB [Suspect]
     Active Substance: ABEMACICLIB
     Dosage: UNK
     Dates: start: 20211006
  5. SULFAMETHOXAZOLE\TRIMETHOPRIM [Concomitant]
     Active Substance: SULFAMETHOXAZOLE\TRIMETHOPRIM
     Indication: Prophylaxis
     Dosage: 1 TAB QD
     Route: 048
     Dates: start: 20201118, end: 20210223
  6. MOSAPRIDE CITRATE [Concomitant]
     Active Substance: MOSAPRIDE CITRATE
     Indication: Prophylaxis
     Dosage: 5 MG, TID
     Route: 048
     Dates: start: 20201103
  7. DIMENHYDRINATE [Concomitant]
     Active Substance: DIMENHYDRINATE
     Indication: Prophylaxis
     Dosage: 50 MG, TID
     Route: 048
     Dates: start: 20201123
  8. VESICARE [Concomitant]
     Active Substance: SOLIFENACIN SUCCINATE
     Indication: Dysuria
     Dosage: 5 MG, QD
     Route: 048
     Dates: start: 20201125
  9. HARNAL [Concomitant]
     Active Substance: TAMSULOSIN HYDROCHLORIDE
     Indication: Dysuria
     Dosage: 0.2 MG, QD
     Route: 048
     Dates: start: 20201125
  10. CRESTOR [Concomitant]
     Active Substance: ROSUVASTATIN CALCIUM
     Indication: Hyperlipidaemia
     Dosage: 10 MG, QD
     Route: 048
     Dates: start: 20201205
  11. TYLENOL [Concomitant]
     Active Substance: ACETAMINOPHEN
     Indication: Hyperlipidaemia
     Dosage: 650 MG, TID
     Route: 048
     Dates: start: 20201207
  12. POTASSIUM CHLORIDE [Concomitant]
     Active Substance: POTASSIUM CHLORIDE
     Indication: Prophylaxis
     Dosage: 600 MG, TID
     Route: 048
     Dates: start: 20201223
  13. DEXAMETHASONE [Concomitant]
     Active Substance: DEXAMETHASONE
     Indication: Prophylaxis
     Dosage: 0.75 MG, QOD
     Route: 048
     Dates: start: 20210203, end: 20210223
  14. LEVOFLOXACIN [Concomitant]
     Active Substance: LEVOFLOXACIN
     Indication: Urinary tract infection
     Dosage: 500 MG, QD
     Route: 048
     Dates: start: 20210224, end: 20210310
  15. LEVOFLOXACIN [Concomitant]
     Active Substance: LEVOFLOXACIN
     Dosage: 500 MG, QD
     Route: 048
     Dates: start: 20210924, end: 20210930
  16. OMAPONE PERI [Concomitant]
     Indication: Decreased appetite
     Dosage: 300 ML, QD
     Route: 042
     Dates: start: 20210317, end: 20210317
  17. AZELASTINE HYDROCHLORIDE [Concomitant]
     Active Substance: AZELASTINE HYDROCHLORIDE
     Indication: Pruritus
     Dosage: 1 MG, QD
     Route: 048
     Dates: start: 20210520
  18. TWOLION [Concomitant]
     Indication: Pruritus
     Dosage: 10 MG, QD
     Route: 048
     Dates: start: 20210520

REACTIONS (2)
  - Tooth extraction [Recovered/Resolved]
  - Device related infection [Recovered/Resolved]

NARRATIVE: CASE EVENT DATE: 20210317
